FAERS Safety Report 7414893-7 (Version None)
Quarter: 2011Q2

REPORT INFORMATION
  Report Type: 
  Country: None (occurrence: None)
  Receive Date: 20110414
  Receipt Date: 20110412
  Transmission Date: 20111010
  Serious: Yes (Other)
  Sender: FDA-Public Use
  Company Number: DE-ALLERGAN-1103960US

PATIENT
  Age: 51 Year
  Sex: Female

DRUGS (1)
  1. OZURDEX [Suspect]
     Indication: RETINAL VEIN OCCLUSION
     Dosage: UNK
     Dates: start: 20110127, end: 20110127

REACTIONS (3)
  - FISTULA [None]
  - DRUG INEFFECTIVE [None]
  - INTRAOCULAR PRESSURE DECREASED [None]
